FAERS Safety Report 11272169 (Version 1)
Quarter: 2015Q3

REPORT INFORMATION
  Report Type: Spontaneous
  Country: US (occurrence: None)
  Receive Date: 20150713
  Receipt Date: 20150713
  Transmission Date: 20151125
  Serious: Yes (Life-Threatening)
  Sender: FDA-Public Use
  Company Number: None

PATIENT
  Age: 1 Day
  Sex: Female
  Weight: 1.4 kg

DRUGS (2)
  1. INFASURF [Suspect]
     Active Substance: CALFACTANT
     Indication: PROPHYLAXIS
     Dosage: 3 ML/KG, RESPIRATORY
     Route: 055
     Dates: start: 20150602, end: 20150703
  2. INFASURF [Suspect]
     Active Substance: CALFACTANT
     Indication: RESPIRATORY DISTRESS
     Dosage: 3 ML/KG, RESPIRATORY
     Route: 055
     Dates: start: 20150602, end: 20150703

REACTIONS (2)
  - Cardio-respiratory arrest [None]
  - Endotracheal intubation complication [None]

NARRATIVE: CASE EVENT DATE: 20150703
